FAERS Safety Report 4700258-5 (Version None)
Quarter: 2005Q2

REPORT INFORMATION
  Report Type: 
  Country: None (occurrence: None)
  Receive Date: 20050209
  Receipt Date: 20050209
  Transmission Date: 20051028
  Serious: No
  Sender: FDA-Public Use
  Company Number: None

PATIENT
  Sex: Female
  Weight: 64.4108 kg

DRUGS (2)
  1. REMERON [Suspect]
     Indication: ANXIETY
     Dosage: 30MG QHS
  2. REMERON [Suspect]
     Indication: DEPRESSION
     Dosage: 30MG QHS

REACTIONS (1)
  - ABDOMINAL DISCOMFORT [None]
